FAERS Safety Report 24944839 (Version 1)
Quarter: 2025Q1

REPORT INFORMATION
  Report Type: Spontaneous
  Country: EG (occurrence: EG)
  Receive Date: 20250208
  Receipt Date: 20250208
  Transmission Date: 20250409
  Serious: Yes (Other)
  Sender: JOHNSON AND JOHNSON
  Company Number: EG-JNJFOC-20250217099

PATIENT
  Age: 52 Year
  Sex: Male
  Weight: 72 kg

DRUGS (1)
  1. REMICADE [Suspect]
     Active Substance: INFLIXIMAB
     Indication: Crohn^s disease
     Route: 041
     Dates: start: 202307, end: 202411

REACTIONS (7)
  - Gastrointestinal fistula [Unknown]
  - Drug ineffective [Unknown]
  - Therapy cessation [Unknown]
  - Fatigue [Unknown]
  - Arthralgia [Unknown]
  - Drug specific antibody [Unknown]
  - Off label use [Unknown]
